FAERS Safety Report 23742512 (Version 1)
Quarter: 2024Q2

REPORT INFORMATION
  Report Type: Spontaneous
  Country: US (occurrence: US)
  Receive Date: 20240415
  Receipt Date: 20240415
  Transmission Date: 20240716
  Serious: Yes (Hospitalization)
  Sender: FDA-Public Use
  Company Number: US-MYLANLABS-2024M1032700

PATIENT
  Age: 59 Year
  Sex: Male

DRUGS (1)
  1. LIDOCAINE [Suspect]
     Active Substance: LIDOCAINE
     Indication: Gastrointestinal disorder
     Dosage: UNK UNK, Q6H, INGESTED GI COCKTAILS CONTAINING LIDOCAINE EVERY 6H
     Route: 048

REACTIONS (1)
  - Bundle branch block left [Recovered/Resolved]
